FAERS Safety Report 17629182 (Version 1)
Quarter: 2020Q2

REPORT INFORMATION
  Report Type: Spontaneous
  Country: FR (occurrence: FR)
  Receive Date: 20200406
  Receipt Date: 20200406
  Transmission Date: 20200713
  Serious: Yes (Other)
  Sender: FDA-Public Use
  Company Number: FR-TEVA-2020-FR-1218625

PATIENT
  Age: 20 Year
  Sex: Male
  Weight: 68 kg

DRUGS (7)
  1. INNOHEP [Suspect]
     Active Substance: TINZAPARIN SODIUM
     Indication: THROMBOSIS PROPHYLAXIS
     Dosage: 12000 IU
     Route: 058
     Dates: start: 20200129, end: 20200227
  2. VINCRISTINE (SULFATE DE) [Concomitant]
     Active Substance: VINCRISTINE SULFATE
     Indication: LYMPHOMA
     Dosage: 1.4 MG/M2
     Route: 041
     Dates: start: 20200131, end: 20200131
  3. ALLOPURINOL. [Suspect]
     Active Substance: ALLOPURINOL
     Indication: PROPHYLAXIS
     Dosage: 300 MG
     Route: 048
     Dates: start: 20200128, end: 202002
  4. ZELITREX 500 MG, COMPRIME ENROBE [Suspect]
     Active Substance: VALACYCLOVIR HYDROCHLORIDE
     Indication: OPPORTUNISTIC INFECTION PROPHYLAXIS
     Dosage: 2 DOSAGE FORMS
     Route: 048
     Dates: start: 202002, end: 202002
  5. CORTANCYL [Concomitant]
     Active Substance: PREDNISONE
     Indication: LYMPHOMA
     Dosage: 2 MG/KG
     Route: 048
     Dates: start: 20200128, end: 20200131
  6. CYCLOPHOSPHAMIDE. [Concomitant]
     Active Substance: CYCLOPHOSPHAMIDE
     Indication: LYMPHOMA
     Dosage: 750 MG/M2
     Route: 041
     Dates: start: 20200131, end: 20200131
  7. PREDNISOLONE. [Concomitant]
     Active Substance: PREDNISOLONE
     Indication: LYMPHOMA
     Dosage: 25 MG/M2
     Route: 048
     Dates: start: 20200131, end: 20200204

REACTIONS (1)
  - Hepatocellular injury [Recovered/Resolved]

NARRATIVE: CASE EVENT DATE: 202002
